FAERS Safety Report 5651464-7 (Version None)
Quarter: 2008Q1

REPORT INFORMATION
  Report Type: 
  Country: None (occurrence: None)
  Receive Date: 20080305
  Receipt Date: 20080222
  Transmission Date: 20080703
  Serious: Yes (Other)
  Sender: FDA-Public Use
  Company Number: GB-ELI_LILLY_AND_COMPANY-GB200706005911

PATIENT
  Sex: Male

DRUGS (3)
  1. STRATTERA [Suspect]
     Indication: ATTENTION DEFICIT/HYPERACTIVITY DISORDER
     Dosage: UNK, UNKNOWN
     Dates: start: 20051001, end: 20051001
  2. STRATTERA [Suspect]
     Dosage: 40 MG, DAILY (1/D)
     Dates: start: 20051001, end: 20071001
  3. SINGULAIR [Concomitant]
     Indication: ASTHMA
     Dosage: 4 MG, UNKNOWN
     Dates: start: 20020101

REACTIONS (7)
  - CHEST PAIN [None]
  - CONVULSION [None]
  - DYSPNOEA [None]
  - FALL [None]
  - LONG QT SYNDROME [None]
  - LOSS OF CONSCIOUSNESS [None]
  - PALPITATIONS [None]
